FAERS Safety Report 24065065 (Version 8)
Quarter: 2024Q4

REPORT INFORMATION
  Report Type: Report from Study
  Country: CA (occurrence: CA)
  Receive Date: 20240709
  Receipt Date: 20241223
  Transmission Date: 20250114
  Serious: Yes (Hospitalization, Other)
  Sender: GLAXOSMITHKLINE
  Company Number: CA-GLAXOSMITHKLINE-CA2023AMR051199

PATIENT

DRUGS (9)
  1. BELIMUMAB [Suspect]
     Active Substance: BELIMUMAB
     Indication: Systemic lupus erythematosus
     Dosage: 10 MG/KG, Q4W (INFUSION)
     Dates: start: 20180606
  2. BELIMUMAB [Suspect]
     Active Substance: BELIMUMAB
     Dosage: 10 MG/KG, Q4W (INFUSION)
  3. BELIMUMAB [Suspect]
     Active Substance: BELIMUMAB
     Dosage: 1100 MG, Q4W
     Route: 042
  4. BELIMUMAB [Suspect]
     Active Substance: BELIMUMAB
     Dosage: 1100 MG, Q4W
     Route: 042
  5. FUROSEMIDE [Concomitant]
     Active Substance: FUROSEMIDE
     Indication: Product used for unknown indication
     Dosage: 40 MG
     Dates: start: 202406
  6. ENTRESTO [Concomitant]
     Active Substance: SACUBITRIL\VALSARTAN
     Indication: Product used for unknown indication
     Dosage: UNK
     Dates: start: 202406
  7. AMIODARONE [Concomitant]
     Active Substance: AMIODARONE
     Indication: Product used for unknown indication
     Dosage: UNK
     Dates: start: 202406
  8. ADALAT [Concomitant]
     Active Substance: NIFEDIPINE
     Indication: Product used for unknown indication
     Dosage: UNK
     Dates: end: 202406
  9. METOPROLOL [Concomitant]
     Active Substance: METOPROLOL
     Indication: Product used for unknown indication
     Dosage: UNK

REACTIONS (20)
  - Arrhythmia [Unknown]
  - Atrial fibrillation [Unknown]
  - Cardiac failure [Not Recovered/Not Resolved]
  - Cardiac dysfunction [Unknown]
  - Aortic stenosis [Not Recovered/Not Resolved]
  - Pericarditis [Recovering/Resolving]
  - Chest pain [Recovering/Resolving]
  - Nasopharyngitis [Unknown]
  - Cough [Not Recovered/Not Resolved]
  - Tooth abscess [Recovered/Resolved]
  - Neuralgia [Unknown]
  - Tooth infection [Recovered/Resolved]
  - Pain [Not Recovered/Not Resolved]
  - Fatigue [Not Recovered/Not Resolved]
  - Dyspnoea [Recovering/Resolving]
  - Mobility decreased [Not Recovered/Not Resolved]
  - Cellulitis [Recovered/Resolved]
  - Arthropod sting [Recovered/Resolved]
  - Inappropriate schedule of product administration [Unknown]
  - Extra dose administered [Unknown]

NARRATIVE: CASE EVENT DATE: 20230309
